FAERS Safety Report 4689164-2 (Version None)
Quarter: 2005Q2

REPORT INFORMATION
  Report Type: 
  Country: None (occurrence: None)
  Receive Date: 20050613
  Receipt Date: 20050601
  Transmission Date: 20051028
  Serious: Yes (Hospitalization)
  Sender: FDA-Public Use
  Company Number: 2005UW08563

PATIENT
  Age: 25 Year
  Sex: Male

DRUGS (3)
  1. SEROQUEL [Suspect]
     Route: 048
  2. COMBIVIR [Interacting]
     Indication: HIV INFECTION
  3. DEPAKOTE [Interacting]

REACTIONS (2)
  - DRUG INTERACTION POTENTIATION [None]
  - PANCYTOPENIA [None]
